FAERS Safety Report 24203901 (Version 2)
Quarter: 2024Q4

REPORT INFORMATION
  Report Type: Spontaneous
  Country: CA (occurrence: CA)
  Receive Date: 20240813
  Receipt Date: 20241108
  Transmission Date: 20250115
  Serious: Yes (Congenital Anomaly)
  Sender: BRISTOL-MYERS SQUIBB COMPANY
  Company Number: CA-BRISTOL-MYERS SQUIBB COMPANY-2024-122394

PATIENT

DRUGS (265)
  1. ORENCIA [Suspect]
     Active Substance: ABATACEPT
     Indication: Product used for unknown indication
     Route: 064
  2. ORENCIA [Suspect]
     Active Substance: ABATACEPT
     Route: 064
  3. ORENCIA [Suspect]
     Active Substance: ABATACEPT
     Route: 064
  4. ORENCIA [Suspect]
     Active Substance: ABATACEPT
     Route: 064
  5. ORENCIA [Suspect]
     Active Substance: ABATACEPT
     Route: 064
  6. ORENCIA [Suspect]
     Active Substance: ABATACEPT
     Route: 064
  7. ORENCIA [Suspect]
     Active Substance: ABATACEPT
     Indication: Product used for unknown indication
     Route: 064
  8. ORENCIA [Suspect]
     Active Substance: ABATACEPT
     Indication: Product used for unknown indication
     Route: 064
  9. CHLORHEXIDINE GLUCONATE\ISOPROPYL ALCOHOL [Concomitant]
     Active Substance: CHLORHEXIDINE GLUCONATE\ISOPROPYL ALCOHOL
     Indication: Product used for unknown indication
     Route: 064
  10. ACETAMINOPHEN [Concomitant]
     Active Substance: ACETAMINOPHEN
     Indication: Product used for unknown indication
     Route: 064
  11. ADALIMUMAB [Concomitant]
     Active Substance: ADALIMUMAB
     Indication: Product used for unknown indication
     Dosage: SOLUTION SUBCUTANEOUS
     Route: 064
  12. ADALIMUMAB [Concomitant]
     Active Substance: ADALIMUMAB
     Route: 064
  13. ADALIMUMAB [Concomitant]
     Active Substance: ADALIMUMAB
     Route: 064
  14. ADALIMUMAB [Concomitant]
     Active Substance: ADALIMUMAB
     Dosage: SOLUTION SUBCUTANEOUS
     Route: 064
  15. ADALIMUMAB [Concomitant]
     Active Substance: ADALIMUMAB
     Route: 064
  16. ADALIMUMAB [Concomitant]
     Active Substance: ADALIMUMAB
     Dosage: SOLUTION SUBCUTANEOUS
     Route: 064
  17. AIMOVIG [Concomitant]
     Active Substance: ERENUMAB-AOOE
     Indication: Product used for unknown indication
     Route: 064
  18. AIMOVIG [Concomitant]
     Active Substance: ERENUMAB-AOOE
     Route: 064
  19. ALENDRONATE SODIUM [Concomitant]
     Active Substance: ALENDRONATE SODIUM
     Indication: Product used for unknown indication
     Route: 064
  20. ALENDRONATE SODIUM [Concomitant]
     Active Substance: ALENDRONATE SODIUM
     Route: 064
  21. ALENDRONATE SODIUM [Concomitant]
     Active Substance: ALENDRONATE SODIUM
     Route: 064
  22. AZATHIOPRINE [Concomitant]
     Active Substance: AZATHIOPRINE
     Indication: Product used for unknown indication
     Route: 064
  23. CANDESARTAN [Concomitant]
     Active Substance: CANDESARTAN
     Indication: Product used for unknown indication
     Route: 064
  24. CANDESARTAN [Concomitant]
     Active Substance: CANDESARTAN
     Route: 064
  25. CETIRIZINE [Concomitant]
     Active Substance: CETIRIZINE HYDROCHLORIDE
     Indication: Product used for unknown indication
     Route: 064
  26. CETIRIZINE [Concomitant]
     Active Substance: CETIRIZINE HYDROCHLORIDE
     Route: 064
  27. CETIRIZINE [Concomitant]
     Active Substance: CETIRIZINE HYDROCHLORIDE
     Route: 064
  28. CETIRIZINE [Concomitant]
     Active Substance: CETIRIZINE HYDROCHLORIDE
     Route: 064
  29. CETIRIZINE [Concomitant]
     Active Substance: CETIRIZINE HYDROCHLORIDE
     Route: 064
  30. CETIRIZINE [Concomitant]
     Active Substance: CETIRIZINE HYDROCHLORIDE
     Route: 064
  31. CETIRIZINE [Concomitant]
     Active Substance: CETIRIZINE HYDROCHLORIDE
     Route: 064
  32. COSENTYX [Concomitant]
     Active Substance: SECUKINUMAB
     Indication: Product used for unknown indication
     Route: 064
  33. DICLOFENAC [Concomitant]
     Active Substance: DICLOFENAC
     Indication: Product used for unknown indication
     Route: 064
  34. ERELZI [Concomitant]
     Active Substance: ETANERCEPT-SZZS
     Indication: Product used for unknown indication
     Route: 064
  35. FLUMETHASONE PIVALATE [Concomitant]
     Active Substance: FLUMETHASONE PIVALATE
     Indication: Product used for unknown indication
     Route: 064
  36. FLUMETHASONE PIVALATE [Concomitant]
     Active Substance: FLUMETHASONE PIVALATE
     Route: 064
  37. FLUMETHASONE PIVALATE [Concomitant]
     Active Substance: FLUMETHASONE PIVALATE
     Route: 064
  38. FOLIC ACID [Concomitant]
     Active Substance: FOLIC ACID
     Indication: Product used for unknown indication
     Route: 064
  39. FOLIC ACID [Concomitant]
     Active Substance: FOLIC ACID
     Route: 064
  40. FOLIC ACID [Concomitant]
     Active Substance: FOLIC ACID
     Route: 064
  41. FOLIC ACID [Concomitant]
     Active Substance: FOLIC ACID
     Route: 064
  42. FOLIC ACID [Concomitant]
     Active Substance: FOLIC ACID
     Route: 064
  43. FOLIC ACID [Concomitant]
     Active Substance: FOLIC ACID
     Route: 064
  44. FOLIC ACID [Concomitant]
     Active Substance: FOLIC ACID
     Route: 064
  45. FOLIC ACID [Concomitant]
     Active Substance: FOLIC ACID
     Route: 064
  46. FOLIC ACID [Concomitant]
     Active Substance: FOLIC ACID
     Route: 064
  47. FOLIC ACID [Concomitant]
     Active Substance: FOLIC ACID
     Route: 064
  48. FOLIC ACID [Concomitant]
     Active Substance: FOLIC ACID
     Route: 064
  49. FOLIC ACID [Concomitant]
     Active Substance: FOLIC ACID
     Route: 064
  50. FOLIC ACID [Concomitant]
     Active Substance: FOLIC ACID
     Route: 064
  51. FOLIC ACID [Concomitant]
     Active Substance: FOLIC ACID
     Route: 064
  52. FOLIC ACID [Concomitant]
     Active Substance: FOLIC ACID
     Route: 064
  53. FOLIC ACID [Concomitant]
     Active Substance: FOLIC ACID
     Route: 064
  54. HAIR KERATIN AMINO ACIDS GOLD COMPLEX [Concomitant]
     Active Substance: HAIR KERATIN AMINO ACIDS GOLD COMPLEX
     Indication: Product used for unknown indication
     Route: 064
  55. GOLD SODIUM THIOMALATE [Concomitant]
     Active Substance: GOLD SODIUM THIOMALATE
     Indication: Product used for unknown indication
     Route: 064
  56. HYDROCORTISONE [Concomitant]
     Active Substance: HYDROCORTISONE
     Indication: Product used for unknown indication
     Route: 064
  57. HYDROCORTISONE PROBUTATE [Concomitant]
     Active Substance: HYDROCORTISONE PROBUTATE
     Indication: Product used for unknown indication
     Route: 064
  58. HYDROXYCHLOROQUINE [Concomitant]
     Active Substance: HYDROXYCHLOROQUINE
     Indication: Product used for unknown indication
     Route: 064
  59. HYDROXYCHLOROQUINE [Concomitant]
     Active Substance: HYDROXYCHLOROQUINE
     Route: 064
  60. HYDROXYCHLOROQUINE [Concomitant]
     Active Substance: HYDROXYCHLOROQUINE
     Route: 064
  61. HYDROXYCHLOROQUINE [Concomitant]
     Active Substance: HYDROXYCHLOROQUINE
     Route: 064
  62. HYDROXYCHLOROQUINE [Concomitant]
     Active Substance: HYDROXYCHLOROQUINE
     Route: 064
  63. HYDROXYCHLOROQUINE SULFATE [Concomitant]
     Active Substance: HYDROXYCHLOROQUINE SULFATE
     Indication: Product used for unknown indication
     Route: 064
  64. INFLIXIMAB [Concomitant]
     Active Substance: INFLIXIMAB
     Indication: Product used for unknown indication
     Route: 064
  65. INFLIXIMAB [Concomitant]
     Active Substance: INFLIXIMAB
     Route: 064
  66. INFLIXIMAB [Concomitant]
     Active Substance: INFLIXIMAB
     Route: 064
  67. INFLIXIMAB [Concomitant]
     Active Substance: INFLIXIMAB
     Route: 064
  68. INFLIXIMAB [Concomitant]
     Active Substance: INFLIXIMAB
     Route: 064
  69. INFLIXIMAB [Concomitant]
     Active Substance: INFLIXIMAB
     Route: 064
  70. INFLIXIMAB [Concomitant]
     Active Substance: INFLIXIMAB
     Route: 064
  71. INFLIXIMAB [Concomitant]
     Active Substance: INFLIXIMAB
     Route: 064
  72. INFLIXIMAB [Concomitant]
     Active Substance: INFLIXIMAB
     Route: 064
  73. ISOPROPYL ALCOHOL [Concomitant]
     Active Substance: ISOPROPYL ALCOHOL
     Indication: Product used for unknown indication
     Dosage: LIQUID TOPICAL
     Route: 064
  74. ISOPROPYL ALCOHOL [Concomitant]
     Active Substance: ISOPROPYL ALCOHOL
     Route: 064
  75. ISOPROPYL ALCOHOL [Concomitant]
     Active Substance: ISOPROPYL ALCOHOL
     Dosage: LIQUID TOPICAL
     Route: 064
  76. MAGNESIUM CITRATE [Concomitant]
     Active Substance: MAGNESIUM CITRATE
     Indication: Product used for unknown indication
     Route: 064
  77. MEGLUMINE [Concomitant]
     Active Substance: MEGLUMINE
     Indication: Product used for unknown indication
     Route: 064
  78. MEGLUMINE [Concomitant]
     Active Substance: MEGLUMINE
     Route: 064
  79. METHOTREXATE [Concomitant]
     Active Substance: METHOTREXATE
     Indication: Product used for unknown indication
     Route: 064
  80. METHOTREXATE [Concomitant]
     Active Substance: METHOTREXATE
     Route: 064
  81. METHOTREXATE [Concomitant]
     Active Substance: METHOTREXATE
     Route: 064
  82. METHOTREXATE [Concomitant]
     Active Substance: METHOTREXATE
     Route: 064
  83. METHOTREXATE [Concomitant]
     Active Substance: METHOTREXATE
     Route: 064
  84. METHOTREXATE [Concomitant]
     Active Substance: METHOTREXATE
     Route: 064
  85. METHOTREXATE [Concomitant]
     Active Substance: METHOTREXATE
     Route: 064
  86. METHOTREXATE [Concomitant]
     Active Substance: METHOTREXATE
     Route: 064
  87. METHOTREXATE [Concomitant]
     Active Substance: METHOTREXATE
     Route: 064
  88. METHOTREXATE [Concomitant]
     Active Substance: METHOTREXATE
     Route: 064
  89. METHOTREXATE [Concomitant]
     Active Substance: METHOTREXATE
     Route: 064
  90. METHYLPREDNISOLONE [Concomitant]
     Active Substance: METHYLPREDNISOLONE
     Indication: Product used for unknown indication
     Route: 064
  91. METHYLPREDNISOLONE [Concomitant]
     Active Substance: METHYLPREDNISOLONE
     Route: 064
  92. METHYLPREDNISOLONE SODIUM SUCCINATE [Concomitant]
     Active Substance: METHYLPREDNISOLONE SODIUM SUCCINATE
     Indication: Product used for unknown indication
     Route: 064
  93. MINOCYCLINE [Concomitant]
     Active Substance: MINOCYCLINE HYDROCHLORIDE
     Indication: Product used for unknown indication
     Route: 064
  94. MINOCYCLINE HYDROCHLORIDE [Concomitant]
     Active Substance: MINOCYCLINE HYDROCHLORIDE
     Indication: Product used for unknown indication
     Route: 064
  95. MYOCHRYSINE [Concomitant]
     Active Substance: GOLD SODIUM THIOMALATE
     Indication: Product used for unknown indication
     Dosage: SOLUTION INTRAMUSCULAR
     Route: 064
  96. MYOCHRYSINE [Concomitant]
     Active Substance: GOLD SODIUM THIOMALATE
     Dosage: SOLUTION INTRAMUSCULAR
     Route: 064
  97. MYRBETRIQ [Concomitant]
     Active Substance: MIRABEGRON
     Indication: Product used for unknown indication
     Dosage: TABLET (EXTENDED- RELEASE)
     Route: 064
  98. MYRBETRIQ [Concomitant]
     Active Substance: MIRABEGRON
     Dosage: TABLET (EXTENDED- RELEASE)
     Route: 064
  99. MYRBETRIQ [Concomitant]
     Active Substance: MIRABEGRON
     Route: 064
  100. MYRBETRIQ [Concomitant]
     Active Substance: MIRABEGRON
     Dosage: TABLET (EXTENDED- RELEASE)
     Route: 064
  101. MYRBETRIQ [Concomitant]
     Active Substance: MIRABEGRON
     Route: 064
  102. NAPROXEN [Concomitant]
     Active Substance: NAPROXEN
     Indication: Product used for unknown indication
     Route: 064
  103. NAPROXEN [Concomitant]
     Active Substance: NAPROXEN
     Route: 064
  104. NAPROXEN SODIUM [Concomitant]
     Active Substance: NAPROXEN SODIUM
     Indication: Product used for unknown indication
     Route: 064
  105. NAPROXEN SODIUM [Concomitant]
     Active Substance: NAPROXEN SODIUM
     Route: 064
  106. NAPROXEN SODIUM [Concomitant]
     Active Substance: NAPROXEN SODIUM
     Route: 064
  107. NAPROXEN SODIUM [Concomitant]
     Active Substance: NAPROXEN SODIUM
     Route: 064
  108. NAPROXEN SODIUM [Concomitant]
     Active Substance: NAPROXEN SODIUM
     Route: 064
  109. NICOTINAMIDE [Concomitant]
     Active Substance: NIACINAMIDE
     Indication: Product used for unknown indication
     Route: 064
  110. NICOTINAMIDE [Concomitant]
     Active Substance: NIACINAMIDE
     Route: 064
  111. NUCALA [Concomitant]
     Active Substance: MEPOLIZUMAB
     Indication: Product used for unknown indication
     Route: 064
  112. OXYCODONE [Concomitant]
     Active Substance: OXYCODONE
     Indication: Product used for unknown indication
     Route: 064
  113. OXYCODONE TEREPHTHALATE [Concomitant]
     Active Substance: OXYCODONE TEREPHTHALATE
     Indication: Product used for unknown indication
     Route: 064
  114. PERIOGARD [Concomitant]
     Active Substance: CHLORHEXIDINE GLUCONATE
     Indication: Product used for unknown indication
     Route: 064
  115. PHTHALYLSULFATHIAZOLE [Concomitant]
     Active Substance: PHTHALYLSULFATHIAZOLE
     Indication: Product used for unknown indication
     Route: 064
  116. PHTHALYLSULFATHIAZOLE [Concomitant]
     Active Substance: PHTHALYLSULFATHIAZOLE
     Route: 064
  117. PHTHALYLSULFATHIAZOLE [Concomitant]
     Active Substance: PHTHALYLSULFATHIAZOLE
     Route: 064
  118. PHTHALYLSULFATHIAZOLE [Concomitant]
     Active Substance: PHTHALYLSULFATHIAZOLE
     Route: 064
  119. PHTHALYLSULFATHIAZOLE [Concomitant]
     Active Substance: PHTHALYLSULFATHIAZOLE
     Route: 064
  120. PHTHALYLSULFATHIAZOLE [Concomitant]
     Active Substance: PHTHALYLSULFATHIAZOLE
     Route: 064
  121. PHTHALYLSULFATHIAZOLE [Concomitant]
     Active Substance: PHTHALYLSULFATHIAZOLE
     Route: 064
  122. PHTHALYLSULFATHIAZOLE [Concomitant]
     Active Substance: PHTHALYLSULFATHIAZOLE
     Route: 064
  123. PHTHALYLSULFATHIAZOLE [Concomitant]
     Active Substance: PHTHALYLSULFATHIAZOLE
     Route: 064
  124. PHTHALYLSULFATHIAZOLE [Concomitant]
     Active Substance: PHTHALYLSULFATHIAZOLE
     Route: 064
  125. PHTHALYLSULFATHIAZOLE [Concomitant]
     Active Substance: PHTHALYLSULFATHIAZOLE
     Route: 064
  126. HYDROXYCHLOROQUINE DIPHOSPHATE [Concomitant]
     Active Substance: HYDROXYCHLOROQUINE DIPHOSPHATE
     Indication: Product used for unknown indication
     Route: 064
  127. PREDNISONE [Concomitant]
     Active Substance: PREDNISONE
     Indication: Product used for unknown indication
     Route: 064
  128. PREDNISONE [Concomitant]
     Active Substance: PREDNISONE
     Route: 064
  129. PREDNISONE [Concomitant]
     Active Substance: PREDNISONE
     Route: 064
  130. PREDNISONE [Concomitant]
     Active Substance: PREDNISONE
     Route: 064
  131. PREDNISONE [Concomitant]
     Active Substance: PREDNISONE
     Route: 064
  132. PREDNISONE [Concomitant]
     Active Substance: PREDNISONE
     Route: 064
  133. PREDNISONE [Concomitant]
     Active Substance: PREDNISONE
     Route: 064
  134. PSEUDOEPHEDRINE [Concomitant]
     Active Substance: PSEUDOEPHEDRINE
     Indication: Product used for unknown indication
     Route: 064
  135. PSEUDOEPHEDRINE [Concomitant]
     Active Substance: PSEUDOEPHEDRINE
     Route: 064
  136. PSEUDOEPHEDRINE [Concomitant]
     Active Substance: PSEUDOEPHEDRINE
     Route: 064
  137. PSEUDOEPHEDRINE [Concomitant]
     Active Substance: PSEUDOEPHEDRINE
     Route: 064
  138. RAMIPRIL [Concomitant]
     Active Substance: RAMIPRIL
     Indication: Product used for unknown indication
     Route: 064
  139. RANITIDINE [Concomitant]
     Active Substance: RANITIDINE
     Indication: Product used for unknown indication
     Route: 064
  140. CETIRIZINE HYDROCHLORIDE\PSEUDOEPHEDRINE HYDROCHLORIDE [Concomitant]
     Active Substance: CETIRIZINE HYDROCHLORIDE\PSEUDOEPHEDRINE HYDROCHLORIDE
     Indication: Product used for unknown indication
     Dosage: TABLET (EXTENDED- RELEASE)
     Route: 064
  141. CETIRIZINE HYDROCHLORIDE\PSEUDOEPHEDRINE HYDROCHLORIDE [Concomitant]
     Active Substance: CETIRIZINE HYDROCHLORIDE\PSEUDOEPHEDRINE HYDROCHLORIDE
     Route: 064
  142. CETIRIZINE HYDROCHLORIDE\PSEUDOEPHEDRINE HYDROCHLORIDE [Concomitant]
     Active Substance: CETIRIZINE HYDROCHLORIDE\PSEUDOEPHEDRINE HYDROCHLORIDE
     Route: 064
  143. CETIRIZINE HYDROCHLORIDE\PSEUDOEPHEDRINE HYDROCHLORIDE [Concomitant]
     Active Substance: CETIRIZINE HYDROCHLORIDE\PSEUDOEPHEDRINE HYDROCHLORIDE
     Route: 064
  144. REMICADE [Concomitant]
     Active Substance: INFLIXIMAB
     Indication: Product used for unknown indication
     Dosage: POWDER FOR SOLUTION INTRAVENOUS
     Route: 064
  145. RIBOFLAVIN [Concomitant]
     Active Substance: RIBOFLAVIN
     Indication: Product used for unknown indication
     Route: 064
  146. RIBOFLAVIN [Concomitant]
     Active Substance: RIBOFLAVIN
     Route: 064
  147. RITUXIMAB [Concomitant]
     Active Substance: RITUXIMAB
     Indication: Product used for unknown indication
     Route: 064
  148. RITUXIMAB [Concomitant]
     Active Substance: RITUXIMAB
     Route: 064
  149. RITUXIMAB [Concomitant]
     Active Substance: RITUXIMAB
     Route: 064
  150. RITUXIMAB [Concomitant]
     Active Substance: RITUXIMAB
     Route: 064
  151. RITUXIMAB [Concomitant]
     Active Substance: RITUXIMAB
     Route: 064
  152. SULFASALAZINE [Concomitant]
     Active Substance: SULFASALAZINE
     Indication: Product used for unknown indication
     Route: 064
  153. SIMPONI [Concomitant]
     Active Substance: GOLIMUMAB
     Indication: Product used for unknown indication
     Route: 064
  154. SIMPONI [Concomitant]
     Active Substance: GOLIMUMAB
     Dosage: SOLUTION SUBCUTANEOUS
     Route: 064
  155. SIMPONI [Concomitant]
     Active Substance: GOLIMUMAB
     Dosage: SOLUTION SUBCUTANEOUS
     Route: 064
  156. SIMPONI [Concomitant]
     Active Substance: GOLIMUMAB
     Route: 064
  157. SIMPONI [Concomitant]
     Active Substance: GOLIMUMAB
     Route: 064
  158. SIRUKUMAB [Concomitant]
     Active Substance: SIRUKUMAB
     Indication: Product used for unknown indication
     Route: 064
  159. GOLD SODIUM THIOMALATE [Concomitant]
     Active Substance: GOLD SODIUM THIOMALATE
     Indication: Product used for unknown indication
     Route: 064
  160. STELARA [Concomitant]
     Active Substance: USTEKINUMAB
     Indication: Product used for unknown indication
     Dosage: SOLUTION SUBCUTANEOUS
     Route: 064
  161. STELARA [Concomitant]
     Active Substance: USTEKINUMAB
     Route: 064
  162. STELARA [Concomitant]
     Active Substance: USTEKINUMAB
     Route: 064
  163. TRAMADOL HYDROCHLORIDE [Concomitant]
     Active Substance: TRAMADOL HYDROCHLORIDE
     Indication: Product used for unknown indication
     Route: 064
  164. ACETAMINOPHEN AND CODEINE [Concomitant]
     Active Substance: ACETAMINOPHEN\CODEINE PHOSPHATE
     Indication: Product used for unknown indication
     Route: 064
  165. ACTEMRA [Concomitant]
     Active Substance: TOCILIZUMAB
     Indication: Product used for unknown indication
     Route: 064
  166. ACTEMRA [Concomitant]
     Active Substance: TOCILIZUMAB
     Route: 064
  167. ACTEMRA [Concomitant]
     Active Substance: TOCILIZUMAB
     Route: 064
  168. ACTEMRA [Concomitant]
     Active Substance: TOCILIZUMAB
     Route: 064
  169. ACTEMRA [Concomitant]
     Active Substance: TOCILIZUMAB
     Dosage: 8.0 MG/KG
     Route: 064
  170. ACTEMRA [Concomitant]
     Active Substance: TOCILIZUMAB
     Route: 064
  171. ACTEMRA [Concomitant]
     Active Substance: TOCILIZUMAB
     Route: 064
  172. ACTEMRA [Concomitant]
     Active Substance: TOCILIZUMAB
     Route: 064
  173. ACTEMRA [Concomitant]
     Active Substance: TOCILIZUMAB
     Route: 064
  174. ACTEMRA [Concomitant]
     Active Substance: TOCILIZUMAB
     Route: 064
  175. ACTEMRA [Concomitant]
     Active Substance: TOCILIZUMAB
     Route: 064
  176. ACTEMRA [Concomitant]
     Active Substance: TOCILIZUMAB
     Route: 064
  177. DICLOFENAC SODIUM [Concomitant]
     Active Substance: DICLOFENAC SODIUM
     Indication: Product used for unknown indication
     Route: 064
  178. DICLOFENAC SODIUM [Concomitant]
     Active Substance: DICLOFENAC SODIUM
     Route: 064
  179. LEFLUNOMIDE [Concomitant]
     Active Substance: LEFLUNOMIDE
     Indication: Product used for unknown indication
     Route: 064
  180. LEFLUNOMIDE [Concomitant]
     Active Substance: LEFLUNOMIDE
     Route: 064
  181. LEFLUNOMIDE [Concomitant]
     Active Substance: LEFLUNOMIDE
     Route: 064
  182. LEFLUNOMIDE [Concomitant]
     Active Substance: LEFLUNOMIDE
     Route: 064
  183. LEFLUNOMIDE [Concomitant]
     Active Substance: LEFLUNOMIDE
     Route: 064
  184. LEFLUNOMIDE [Concomitant]
     Active Substance: LEFLUNOMIDE
     Route: 064
  185. ARAVA [Concomitant]
     Active Substance: LEFLUNOMIDE
     Indication: Product used for unknown indication
     Route: 064
  186. ARAVA [Concomitant]
     Active Substance: LEFLUNOMIDE
     Route: 064
  187. ATOMOXETINE [Concomitant]
     Active Substance: ATOMOXETINE HYDROCHLORIDE
     Indication: Product used for unknown indication
     Route: 064
  188. BERINERT [Concomitant]
     Active Substance: HUMAN C1-ESTERASE INHIBITOR
     Indication: Product used for unknown indication
     Route: 064
  189. BOTULINUM TOXIN TYPE A [Concomitant]
     Active Substance: BOTULINUM TOXIN TYPE A
     Indication: Product used for unknown indication
     Dosage: POWDER FOR SOLUTION
     Route: 064
  190. BUTRANS [Concomitant]
     Active Substance: BUPRENORPHINE
     Indication: Product used for unknown indication
     Route: 064
  191. BUTRANS [Concomitant]
     Active Substance: BUPRENORPHINE
     Dosage: PATCH
     Route: 064
  192. CALCIUM [Concomitant]
     Active Substance: CALCIUM
     Indication: Product used for unknown indication
     Route: 064
  193. CALCIUM ASCORBATE [Concomitant]
     Active Substance: CALCIUM ASCORBATE
     Indication: Product used for unknown indication
     Route: 064
  194. CALCIUM CITRATE [Concomitant]
     Active Substance: CALCIUM CITRATE
     Indication: Product used for unknown indication
     Route: 064
  195. CALCIUM GLUBIONATE [Concomitant]
     Active Substance: CALCIUM GLUBIONATE
     Indication: Product used for unknown indication
     Route: 064
  196. CELEBREX [Concomitant]
     Active Substance: CELECOXIB
     Indication: Product used for unknown indication
     Route: 064
  197. CELEBREX [Concomitant]
     Active Substance: CELECOXIB
     Route: 064
  198. CHOLECALCIFEROL [Concomitant]
     Active Substance: CHOLECALCIFEROL
     Indication: Product used for unknown indication
     Route: 064
  199. CIMZIA [Concomitant]
     Active Substance: CERTOLIZUMAB PEGOL
     Indication: Product used for unknown indication
     Route: 064
  200. CIMZIA [Concomitant]
     Active Substance: CERTOLIZUMAB PEGOL
     Route: 064
  201. CIMZIA [Concomitant]
     Active Substance: CERTOLIZUMAB PEGOL
     Route: 064
  202. CORTISONE ACETATE [Concomitant]
     Active Substance: CORTISONE ACETATE
     Indication: Product used for unknown indication
     Route: 064
  203. CORTISONE ACETATE [Concomitant]
     Active Substance: CORTISONE ACETATE
     Route: 064
  204. DESOXIMETASONE [Concomitant]
     Active Substance: DESOXIMETASONE
     Indication: Product used for unknown indication
     Route: 064
  205. DESOXIMETASONE [Concomitant]
     Active Substance: DESOXIMETASONE
     Route: 064
  206. DESOXIMETASONE [Concomitant]
     Active Substance: DESOXIMETASONE
     Route: 064
  207. DICLOFENAC SODIUM [Concomitant]
     Active Substance: DICLOFENAC SODIUM
     Indication: Product used for unknown indication
     Route: 064
  208. DICLOFENAC SODIUM [Concomitant]
     Active Substance: DICLOFENAC SODIUM
     Route: 064
  209. DOMPERIDONE MALEATE [Concomitant]
     Active Substance: DOMPERIDONE MALEATE
     Indication: Product used for unknown indication
     Route: 064
  210. ENBREL [Concomitant]
     Active Substance: ETANERCEPT
     Indication: Product used for unknown indication
     Route: 064
  211. ENBREL [Concomitant]
     Active Substance: ETANERCEPT
     Route: 064
  212. ENBREL [Concomitant]
     Active Substance: ETANERCEPT
     Route: 064
  213. ENBREL [Concomitant]
     Active Substance: ETANERCEPT
     Route: 064
  214. ENBREL [Concomitant]
     Active Substance: ETANERCEPT
     Route: 064
  215. ERGOCALCIFEROL [Concomitant]
     Active Substance: ERGOCALCIFEROL
     Indication: Product used for unknown indication
     Route: 064
  216. FLUMETHASONE [Concomitant]
     Active Substance: FLUMETHASONE
     Indication: Product used for unknown indication
     Route: 064
  217. FOSAMAX [Concomitant]
     Active Substance: ALENDRONATE SODIUM
     Indication: Product used for unknown indication
     Route: 064
  218. FOSAMAX [Concomitant]
     Active Substance: ALENDRONATE SODIUM
     Route: 064
  219. FOSAMAX [Concomitant]
     Active Substance: ALENDRONATE SODIUM
     Route: 064
  220. KEVZARA [Concomitant]
     Active Substance: SARILUMAB
     Indication: Product used for unknown indication
     Route: 064
  221. LAMICTAL [Concomitant]
     Active Substance: LAMOTRIGINE
     Indication: Product used for unknown indication
     Route: 064
  222. LAMICTAL [Concomitant]
     Active Substance: LAMOTRIGINE
     Route: 064
  223. LAMICTAL [Concomitant]
     Active Substance: LAMOTRIGINE
     Route: 064
  224. LAMICTAL [Concomitant]
     Active Substance: LAMOTRIGINE
     Route: 064
  225. LAMICTAL [Concomitant]
     Active Substance: LAMOTRIGINE
     Route: 064
  226. LEFLUNOMIDE [Concomitant]
     Active Substance: LEFLUNOMIDE
     Indication: Product used for unknown indication
     Route: 064
  227. LEFLUNOMIDE [Concomitant]
     Active Substance: LEFLUNOMIDE
     Route: 064
  228. LEFLUNOMIDE [Concomitant]
     Active Substance: LEFLUNOMIDE
     Route: 064
  229. LEFLUNOMIDE [Concomitant]
     Active Substance: LEFLUNOMIDE
     Route: 064
  230. LEFLUNOMIDE [Concomitant]
     Active Substance: LEFLUNOMIDE
     Route: 064
  231. LEFLUNOMIDE [Concomitant]
     Active Substance: LEFLUNOMIDE
     Route: 064
  232. VITAMIN C [Concomitant]
     Active Substance: ASCORBIC ACID
     Indication: Product used for unknown indication
     Route: 064
  233. GOLD [Concomitant]
     Active Substance: GOLD
     Indication: Product used for unknown indication
     Route: 064
  234. ALENDRONATE SODIUM\CHOLECALCIFEROL [Concomitant]
     Active Substance: ALENDRONATE SODIUM\CHOLECALCIFEROL
     Indication: Product used for unknown indication
     Route: 064
  235. ALENDRONIC ACID [Concomitant]
     Active Substance: ALENDRONIC ACID
     Indication: Product used for unknown indication
     Route: 064
  236. ALENDRONIC ACID [Concomitant]
     Active Substance: ALENDRONIC ACID
     Route: 064
  237. PREDNISONE [Concomitant]
     Active Substance: PREDNISONE
     Indication: Product used for unknown indication
     Route: 064
  238. PREDNISONE [Concomitant]
     Active Substance: PREDNISONE
     Route: 064
  239. PREDNISONE [Concomitant]
     Active Substance: PREDNISONE
     Route: 064
  240. PREDNISONE [Concomitant]
     Active Substance: PREDNISONE
     Route: 064
  241. PREDNISONE [Concomitant]
     Active Substance: PREDNISONE
     Route: 064
  242. CERTOLIZUMAB PEGOL [Concomitant]
     Active Substance: CERTOLIZUMAB PEGOL
     Indication: Product used for unknown indication
     Route: 064
  243. CERTOLIZUMAB PEGOL [Concomitant]
     Active Substance: CERTOLIZUMAB PEGOL
     Route: 064
  244. ERENUMAB [Concomitant]
     Active Substance: ERENUMAB
     Indication: Product used for unknown indication
     Route: 064
  245. GOLIMUMAB [Concomitant]
     Active Substance: GOLIMUMAB
     Indication: Product used for unknown indication
     Route: 064
  246. GOLIMUMAB [Concomitant]
     Active Substance: GOLIMUMAB
     Route: 064
  247. HUMIRA [Concomitant]
     Active Substance: ADALIMUMAB
     Indication: Product used for unknown indication
     Dosage: SOLUTION SUBCUTANEOUS
     Route: 064
  248. HUMIRA [Concomitant]
     Active Substance: ADALIMUMAB
     Dosage: SOLUTION SUBCUTANEOUS
     Route: 064
  249. HUMIRA [Concomitant]
     Active Substance: ADALIMUMAB
     Dosage: SOLUTION SUBCUTANEOUS
     Route: 064
  250. SULFAMETHOXAZOLE\TRIMETHOPRIM [Concomitant]
     Active Substance: SULFAMETHOXAZOLE\TRIMETHOPRIM
     Indication: Product used for unknown indication
     Route: 064
  251. SULFASALAZINE [Concomitant]
     Active Substance: SULFASALAZINE
     Indication: Product used for unknown indication
     Route: 064
  252. SULFASALAZINE [Concomitant]
     Active Substance: SULFASALAZINE
     Route: 064
  253. THIAMINE HYDROCHLORIDE [Concomitant]
     Active Substance: THIAMINE HYDROCHLORIDE
     Indication: Product used for unknown indication
     Route: 064
  254. TOCILIZUMAB [Concomitant]
     Active Substance: TOCILIZUMAB
     Indication: Product used for unknown indication
     Route: 064
  255. TOCILIZUMAB [Concomitant]
     Active Substance: TOCILIZUMAB
     Route: 064
  256. TOCILIZUMAB [Concomitant]
     Active Substance: TOCILIZUMAB
     Route: 064
  257. TOFACITINIB CITRATE [Concomitant]
     Active Substance: TOFACITINIB CITRATE
     Indication: Product used for unknown indication
     Route: 064
  258. USTEKINUMAB [Concomitant]
     Active Substance: USTEKINUMAB
     Indication: Product used for unknown indication
     Route: 064
  259. USTEKINUMAB [Concomitant]
     Active Substance: USTEKINUMAB
     Route: 064
  260. VITAMIN D3 [Concomitant]
     Active Substance: CHOLECALCIFEROL
     Indication: Product used for unknown indication
     Route: 064
  261. XELJANZ [Concomitant]
     Active Substance: TOFACITINIB CITRATE
     Indication: Product used for unknown indication
     Route: 064
  262. XELJANZ [Concomitant]
     Active Substance: TOFACITINIB CITRATE
     Route: 064
  263. XELJANZ [Concomitant]
     Active Substance: TOFACITINIB CITRATE
     Route: 064
  264. ZINC [Concomitant]
     Active Substance: ZINC
     Indication: Product used for unknown indication
     Route: 064
  265. TOPIRAMATE [Concomitant]
     Active Substance: TOPIRAMATE
     Indication: Product used for unknown indication
     Route: 064

REACTIONS (2)
  - Foetal exposure during pregnancy [Unknown]
  - Congenital anomaly [Unknown]
